FAERS Safety Report 6924839-3 (Version None)
Quarter: 2010Q3

REPORT INFORMATION
  Report Type: 
  Country: None (occurrence: None)
  Receive Date: 20100816
  Receipt Date: 20100811
  Transmission Date: 20110219
  Serious: Yes (Death, Hospitalization)
  Sender: FDA-Public Use
  Company Number: NZ-ASTRAZENECA-2010SE37740

PATIENT

DRUGS (1)
  1. SYMBICORT SMART [Suspect]
     Indication: ASTHMA
     Route: 055

REACTIONS (1)
  - RESPIRATORY FAILURE [None]
